FAERS Safety Report 5407190-2 (Version None)
Quarter: 2007Q3

REPORT INFORMATION
  Report Type: 
  Country: None (occurrence: None)
  Receive Date: 20070803
  Receipt Date: 20070724
  Transmission Date: 20080115
  Serious: Yes (Hospitalization)
  Sender: FDA-Public Use
  Company Number: 2007BI013382

PATIENT
  Age: 39 Year
  Sex: Female

DRUGS (1)
  1. NATALIZUMAB [Suspect]
     Indication: MULTIPLE SCLEROSIS
     Dosage: 300 UG; QW; IV
     Route: 042
     Dates: start: 20070531

REACTIONS (2)
  - FACIAL PALSY [None]
  - HYPERTENSION [None]
